FAERS Safety Report 21572026 (Version 1)
Quarter: 2022Q4

REPORT INFORMATION
  Report Type: Report from Study
  Country: JP (occurrence: JP)
  Receive Date: 20221109
  Receipt Date: 20221109
  Transmission Date: 20230113
  Serious: Yes (Other)
  Sender: FDA-Public Use
  Company Number: JP-ASTELLAS-2022JP016192

PATIENT
  Age: 81 Year
  Sex: Female

DRUGS (1)
  1. ENFORTUMAB VEDOTIN [Suspect]
     Active Substance: ENFORTUMAB VEDOTIN
     Indication: Bladder cancer
     Dosage: UNK UNK, UNKNOWN FREQ., 2 CYCLE
     Route: 065

REACTIONS (3)
  - Skin disorder [Unknown]
  - Pruritus [Unknown]
  - Neutrophil count decreased [Unknown]
